FAERS Safety Report 5538138-8 (Version None)
Quarter: 2007Q4

REPORT INFORMATION
  Report Type: 
  Country: None (occurrence: None)
  Receive Date: 20071207
  Receipt Date: 20071127
  Transmission Date: 20080405
  Serious: Yes (Other)
  Sender: FDA-Public Use
  Company Number: US-PFIZER INC-2007101222

PATIENT
  Sex: Female

DRUGS (3)
  1. CHANTIX [Suspect]
  2. CARDIOVASCULAR SYSTEM DRUGS [Concomitant]
  3. XANAX [Concomitant]

REACTIONS (6)
  - ABNORMAL DREAMS [None]
  - BLOOD PRESSURE INCREASED [None]
  - DIZZINESS [None]
  - HYPOKINESIA [None]
  - MYOCARDIAL INFARCTION [None]
  - PALPITATIONS [None]
